FAERS Safety Report 17805342 (Version 1)
Quarter: 2020Q2

REPORT INFORMATION
  Report Type: Spontaneous
  Country: BR (occurrence: BR)
  Receive Date: 20200520
  Receipt Date: 20200520
  Transmission Date: 20200714
  Serious: Yes (Hospitalization, Other)
  Sender: FDA-Public Use
  Company Number: BR-LUPIN PHARMACEUTICALS INC.-2020-02228

PATIENT
  Sex: Male

DRUGS (3)
  1. DEXAMETHASONE. [Suspect]
     Active Substance: DEXAMETHASONE
     Indication: FOETAL HEART RATE ABNORMAL
     Dosage: 8 MILLIGRAM, QD
     Route: 064
  2. BETAMETHASONE. [Suspect]
     Active Substance: BETAMETHASONE
     Indication: FOETAL HEART RATE ABNORMAL
     Dosage: 8 MILLIGRAM, QD
     Route: 064
  3. TERBUTALINE [Suspect]
     Active Substance: TERBUTALINE
     Indication: FOETAL HEART RATE ABNORMAL
     Dosage: 400 MILLIGRAM, QD
     Route: 064

REACTIONS (6)
  - Pulmonary hypertension [Recovered/Resolved]
  - Foetal exposure during pregnancy [Unknown]
  - Pericardial effusion [Recovered/Resolved]
  - Endocardial fibroelastosis [Recovered/Resolved]
  - Bradycardia foetal [Recovered/Resolved]
  - Ventricular dysfunction [Recovered/Resolved]
